FAERS Safety Report 4621532-7 (Version None)
Quarter: 2005Q1

REPORT INFORMATION
  Report Type: 
  Country: None (occurrence: None)
  Receive Date: 20050328
  Receipt Date: 20031028
  Transmission Date: 20050727
  Serious: No
  Sender: FDA-Public Use
  Company Number: 9677

PATIENT

DRUGS (2)
  1. METHOTREXATE [Suspect]
     Indication: CROHN'S DISEASE
     Dosage: 25 MG WEEKLY
     Route: 042
  2. PREDNISOLONE [Concomitant]

REACTIONS (1)
  - HEPATITIS ACUTE [None]
